FAERS Safety Report 7400171-9 (Version None)
Quarter: 2011Q2

REPORT INFORMATION
  Report Type: 
  Country: None (occurrence: None)
  Receive Date: 20110407
  Receipt Date: 20110331
  Transmission Date: 20111010
  Serious: Yes (Death)
  Sender: FDA-Public Use
  Company Number: PHHY2011JP27390

PATIENT
  Age: 48 Year
  Sex: Female

DRUGS (2)
  1. GLEEVEC [Suspect]
     Indication: CHRONIC MYELOID LEUKAEMIA
     Dosage: 300 MG, DAILY
     Route: 048
     Dates: start: 20090501, end: 20110201
  2. OMEPRAL [Concomitant]
     Route: 048
     Dates: end: 20110201

REACTIONS (3)
  - INTESTINAL T-CELL LYMPHOMA [None]
  - ASCITES [None]
  - NEOPLASM MALIGNANT [None]
